FAERS Safety Report 10566111 (Version 1)
Quarter: 2014Q4

REPORT INFORMATION
  Report Type: Spontaneous
  Country: US (occurrence: US)
  Receive Date: 20141105
  Receipt Date: 20141105
  Transmission Date: 20150529
  Serious: No
  Sender: FDA-Public Use
  Company Number: US-EISAI MEDICAL RESEARCH-EC-2014-001265

PATIENT
  Age: 43 Year
  Sex: Female

DRUGS (2)
  1. BELVIQ [Suspect]
     Active Substance: LORCASERIN HYDROCHLORIDE
     Indication: WEIGHT DECREASED
     Route: 048
     Dates: start: 201410, end: 201410
  2. BELVIQ [Suspect]
     Active Substance: LORCASERIN HYDROCHLORIDE
     Route: 048
     Dates: start: 20141023

REACTIONS (2)
  - Somnolence [Recovered/Resolved]
  - Headache [Recovered/Resolved]

NARRATIVE: CASE EVENT DATE: 201410
